FAERS Safety Report 7771298-7 (Version None)
Quarter: 2011Q3

REPORT INFORMATION
  Report Type: 
  Country: None (occurrence: None)
  Receive Date: 20110922
  Receipt Date: 20110919
  Transmission Date: 20111222
  Serious: Yes (Hospitalization)
  Sender: FDA-Public Use
  Company Number: MY-MERCK-1109USA01815

PATIENT
  Age: 32 Month
  Sex: Male
  Weight: 14 kg

DRUGS (4)
  1. ALVESCO [Concomitant]
     Indication: BRONCHITIS
     Route: 065
     Dates: start: 20110912, end: 20110913
  2. SINGULAIR [Suspect]
     Indication: BRONCHITIS
     Route: 048
     Dates: start: 20101025, end: 20110913
  3. SINGULAIR [Suspect]
     Route: 048
     Dates: start: 20101018, end: 20101024
  4. VENTOLIN [Concomitant]
     Indication: BRONCHITIS
     Route: 065
     Dates: start: 20110912, end: 20110913

REACTIONS (3)
  - ABNORMAL BEHAVIOUR [None]
  - PSYCHOMOTOR HYPERACTIVITY [None]
  - AGGRESSION [None]
